FAERS Safety Report 4524562-9 (Version None)
Quarter: 2004Q4

REPORT INFORMATION
  Report Type: 
  Country: None (occurrence: None)
  Receive Date: 20041117
  Receipt Date: 20040701
  Transmission Date: 20050328
  Serious: Yes (Hospitalization)
  Sender: FDA-Public Use
  Company Number: US-JNJFOC-20040404332

PATIENT
  Age: 29 Year
  Sex: Female
  Weight: 64.4108 kg

DRUGS (5)
  1. LEVAQUIN [Suspect]
     Indication: PHARYNGITIS STREPTOCOCCAL
     Dosage: 500 MG
     Dates: start: 20040226, end: 20040306
  2. ASPIRIN [Concomitant]
  3. PLAQUENIL [Concomitant]
  4. AMBIEN [Concomitant]
  5. MULTIVITAMIN (MULTIVITAMINS) [Concomitant]

REACTIONS (1)
  - LEUKOCYTOCLASTIC VASCULITIS [None]
